FAERS Safety Report 8507153-4 (Version None)
Quarter: 2012Q3

REPORT INFORMATION
  Report Type: 
  Country: None (occurrence: None)
  Receive Date: 20120712
  Receipt Date: 20120709
  Transmission Date: 20120928
  Serious: Yes (Hospitalization, Other)
  Sender: FDA-Public Use
  Company Number: US-PFIZER INC-2012164890

PATIENT
  Sex: Female

DRUGS (10)
  1. MULTI-VITAMINS [Concomitant]
     Dosage: UNK, DAILY
  2. ZINC [Concomitant]
     Dosage: UNK, DAILY
  3. CALTRATE 600+D [Concomitant]
     Dosage: UNK, DAILY
  4. DILANTIN [Suspect]
     Indication: PETIT MAL EPILEPSY
     Dosage: 200 MG, 2X/DAY
     Dates: start: 19940101
  5. VITAMIN B6 [Concomitant]
     Dosage: UNK, DAILY
  6. ASCORBIC ACID [Concomitant]
     Dosage: UNK, DAILY
  7. VITAMIN B-12 [Concomitant]
     Dosage: UNK, 2X/MONTH
  8. BUMEX [Concomitant]
     Indication: FLUID RETENTION
     Dosage: UNK, DAILY
  9. MOBIC [Concomitant]
     Indication: INTERVERTEBRAL DISC DEGENERATION
  10. MOBIC [Concomitant]
     Indication: SPONDYLITIS
     Dosage: UNK, 2X/DAY

REACTIONS (3)
  - BRAIN NEOPLASM [None]
  - RENAL DISORDER [None]
  - RENAL CELL CARCINOMA [None]
